FAERS Safety Report 24696840 (Version 1)
Quarter: 2024Q4

REPORT INFORMATION
  Report Type: Spontaneous
  Country: IE (occurrence: IE)
  Receive Date: 20241204
  Receipt Date: 20241204
  Transmission Date: 20250115
  Serious: Yes (Death)
  Sender: PFIZER
  Company Number: None

PATIENT
  Age: 77 Year

DRUGS (2)
  1. IBRANCE [Suspect]
     Active Substance: PALBOCICLIB
     Indication: Hormone receptor positive breast cancer
     Dosage: ^STANDARD^ DOSAGE
     Route: 048
     Dates: start: 20231017
  2. FULVESTRANT [Concomitant]
     Active Substance: FULVESTRANT
     Indication: Hormone receptor positive breast cancer
     Dosage: ^STANDARD^ DOSAGE
     Dates: start: 20231017, end: 20240220

REACTIONS (2)
  - Tuberculosis [Fatal]
  - Disseminated tuberculosis [Fatal]

NARRATIVE: CASE EVENT DATE: 20240324
